FAERS Safety Report 6858907-1 (Version None)
Quarter: 2010Q3

REPORT INFORMATION
  Report Type: 
  Country: None (occurrence: None)
  Receive Date: 20100719
  Receipt Date: 20080219
  Transmission Date: 20110219
  Serious: No
  Sender: FDA-Public Use
  Company Number: US-PFIZER INC-2008017351

PATIENT
  Sex: Female
  Weight: 81.6 kg

DRUGS (2)
  1. CHANTIX [Suspect]
     Indication: SMOKING CESSATION THERAPY
     Dates: start: 20080122, end: 20080216
  2. ALCOHOL [Suspect]

REACTIONS (9)
  - ABNORMAL BEHAVIOUR [None]
  - DRUG DOSE OMISSION [None]
  - FATIGUE [None]
  - FEELING ABNORMAL [None]
  - FEELING DRUNK [None]
  - MALAISE [None]
  - NAUSEA [None]
  - SLUGGISHNESS [None]
  - SPEECH DISORDER [None]
